FAERS Safety Report 22377273 (Version 1)
Quarter: 2023Q2

REPORT INFORMATION
  Report Type: Spontaneous
  Country: None (occurrence: US)
  Receive Date: 20230529
  Receipt Date: 20230529
  Transmission Date: 20230721
  Serious: Yes (Congenital Anomaly, Other)
  Sender: FDA-Public Use
  Company Number: US-Oxford Pharmaceuticals, LLC-2142082

PATIENT
  Sex: Male

DRUGS (2)
  1. SPIRONOLACTONE [Suspect]
     Active Substance: SPIRONOLACTONE
     Indication: Alopecia
     Route: 064
  2. DUTASTERIDE [Suspect]
     Active Substance: DUTASTERIDE
     Route: 064

REACTIONS (3)
  - Genitalia external ambiguous [Unknown]
  - 5-alpha-reductase deficiency [Unknown]
  - Foetal exposure during pregnancy [Unknown]
